FAERS Safety Report 5050889-0 (Version None)
Quarter: 2006Q3

REPORT INFORMATION
  Report Type: 
  Country: None (occurrence: None)
  Receive Date: 20060710
  Receipt Date: 20060627
  Transmission Date: 20061208
  Serious: Yes (Other)
  Sender: FDA-Public Use
  Company Number: 2006080909

PATIENT
  Age: 32 Year
  Sex: Female

DRUGS (1)
  1. ZITHROMAX [Suspect]
     Indication: PHARYNGOLARYNGEAL PAIN
     Dosage: ORAL
     Route: 048
     Dates: start: 20060526, end: 20060528

REACTIONS (8)
  - ARTHRALGIA [None]
  - BLOOD COPPER INCREASED [None]
  - C-REACTIVE PROTEIN INCREASED [None]
  - NAUSEA [None]
  - PAIN [None]
  - PYREXIA [None]
  - RED BLOOD CELL SEDIMENTATION RATE INCREASED [None]
  - TRANSAMINASES INCREASED [None]
